FAERS Safety Report 5059487-6 (Version None)
Quarter: 2006Q3

REPORT INFORMATION
  Report Type: 
  Country: None (occurrence: None)
  Receive Date: 20060724
  Receipt Date: 20060714
  Transmission Date: 20061208
  Serious: Yes (Hospitalization)
  Sender: FDA-Public Use
  Company Number: US-AVENTIS-200616053US

PATIENT

DRUGS (1)
  1. LANTUS [Suspect]
     Dosage: DOSE: UNK

REACTIONS (4)
  - CARDIAC DISORDER [None]
  - CARDIAC ENZYMES INCREASED [None]
  - DYSPNOEA [None]
  - HEART RATE INCREASED [None]
